FAERS Safety Report 10070521 (Version 1)
Quarter: 2014Q2

REPORT INFORMATION
  Report Type: Spontaneous
  Country: US (occurrence: US)
  Receive Date: 20140410
  Receipt Date: 20140410
  Transmission Date: 20141212
  Serious: No
  Sender: FDA-Public Use
  Company Number: US-BAYER-2014-046516

PATIENT
  Age: 63 Year
  Sex: Male
  Weight: 79.37 kg

DRUGS (4)
  1. ALEVE CAPLET [Suspect]
     Indication: INFLAMMATION
     Dosage: 1 DF, TID
     Route: 048
     Dates: start: 201402, end: 20140325
  2. ATIVAN [Concomitant]
  3. PRILOSEC [Concomitant]
  4. AMOXICILLIN [Concomitant]

REACTIONS (4)
  - Somnolence [Not Recovered/Not Resolved]
  - Incorrect drug administration duration [None]
  - Medication error [None]
  - Eye swelling [Not Recovered/Not Resolved]
